FAERS Safety Report 5215094-3 (Version None)
Quarter: 2007Q1

REPORT INFORMATION
  Report Type: 
  Country: None (occurrence: None)
  Receive Date: 20070117
  Receipt Date: 20060523
  Transmission Date: 20070707
  Serious: Yes (Hospitalization, Other)
  Sender: FDA-Public Use
  Company Number: 0605-284

PATIENT
  Age: 1 Day
  Sex: Male
  Weight: 4 kg

DRUGS (6)
  1. CUROSURF [Suspect]
     Dosage: 480 MG, INTRATRACHEAL
     Route: 039
     Dates: start: 20060410
  2. NITRIC OXIDE [Concomitant]
  3. OXYCODONE HCL [Concomitant]
  4. MIDAZOLAM HCL [Concomitant]
  5. FENTANYL [Concomitant]
  6. DOPAMINE HCL [Concomitant]

REACTIONS (4)
  - NEONATAL PNEUMONIA [None]
  - PULMONARY HYPERTENSION [None]
  - RESPIRATORY DISORDER [None]
  - RESPIRATORY FAILURE [None]
